FAERS Safety Report 5632422-5 (Version None)
Quarter: 2008Q1

REPORT INFORMATION
  Report Type: 
  Country: None (occurrence: None)
  Receive Date: 20080220
  Receipt Date: 20070219
  Transmission Date: 20080703
  Serious: No
  Sender: FDA-Public Use
  Company Number: US-ASTRAZENECA-2007UW03290

PATIENT
  Age: 87 Year
  Sex: Male

DRUGS (6)
  1. PLENDIL [Suspect]
     Route: 048
  2. PROSCAR [Concomitant]
  3. THYROID TAB [Concomitant]
  4. ZETIA [Concomitant]
  5. ASPIRIN [Concomitant]
  6. HYDROCHLOROTHIAZIDE [Concomitant]

REACTIONS (2)
  - INFECTION [None]
  - SWELLING [None]
